FAERS Safety Report 16805423 (Version 1)
Quarter: 2019Q3

REPORT INFORMATION
  Report Type: Spontaneous
  Country: CN (occurrence: CN)
  Receive Date: 20190913
  Receipt Date: 20190913
  Transmission Date: 20191005
  Serious: Yes (Other)
  Sender: FDA-Public Use
  Company Number: PHHY2019CN213076

PATIENT

DRUGS (1)
  1. HYDROXYCHLOROQUINE [Suspect]
     Active Substance: HYDROXYCHLOROQUINE
     Indication: IGA NEPHROPATHY
     Route: 065

REACTIONS (4)
  - Nausea [Unknown]
  - Palpitations [Unknown]
  - Pigmentation disorder [Unknown]
  - Product use in unapproved indication [Unknown]
